FAERS Safety Report 18187205 (Version 2)
Quarter: 2020Q3

REPORT INFORMATION
  Report Type: Spontaneous
  Country: US (occurrence: US)
  Receive Date: 20200824
  Receipt Date: 20200827
  Transmission Date: 20201103
  Serious: Yes (Other)
  Sender: FDA-Public Use
  Company Number: US-CELLTRION INC.-2020US022786

PATIENT

DRUGS (1)
  1. INFLECTRA [Suspect]
     Active Substance: INFLIXIMAB-DYYB
     Indication: RHEUMATOID ARTHRITIS
     Dosage: 600MG, UNKNOWN
     Dates: start: 20200116, end: 20200312

REACTIONS (4)
  - Therapy cessation [Unknown]
  - Neoplasm malignant [Unknown]
  - Intentional dose omission [Unknown]
  - Overdose [Unknown]
